FAERS Safety Report 9109796 (Version 2)
Quarter: 2013Q1

REPORT INFORMATION
  Report Type: Spontaneous
  Country: US (occurrence: US)
  Receive Date: 20130222
  Receipt Date: 20130325
  Transmission Date: 20140127
  Serious: Yes (Other)
  Sender: FDA-Public Use
  Company Number: US-PFIZER INC-2013061362

PATIENT
  Sex: Female

DRUGS (1)
  1. PROCARDIA [Suspect]
     Dosage: 10 MG, UNK
     Route: 048

REACTIONS (2)
  - Choking [Unknown]
  - Product quality issue [Unknown]
